FAERS Safety Report 9511111 (Version 2)
Quarter: 2014Q2

REPORT INFORMATION
  Report Type: Spontaneous
  Country: IT (occurrence: IT)
  Receive Date: 20130910
  Receipt Date: 20140404
  Transmission Date: 20141212
  Serious: Yes (Hospitalization)
  Sender: FDA-Public Use
  Company Number: IT-ASTRAZENECA-2013SE67309

PATIENT
  Age: 4134 Week
  Sex: Female

DRUGS (7)
  1. ROSUVASTATIN [Suspect]
     Indication: HYPERCHOLESTEROLAEMIA
     Route: 048
     Dates: start: 20130520, end: 20130523
  2. AZITHROMYCIN [Suspect]
     Indication: BRONCHOPNEUMONIA
     Route: 048
     Dates: start: 20130520, end: 20130523
  3. LASIX [Concomitant]
     Indication: HYPERTENSION
     Route: 048
  4. TRIATEC [Concomitant]
     Indication: HYPERTENSION
     Route: 048
  5. SPIRIVA [Concomitant]
     Indication: CHRONIC OBSTRUCTIVE PULMONARY DISEASE
     Route: 055
  6. ALIFLUS [Concomitant]
     Indication: CHRONIC OBSTRUCTIVE PULMONARY DISEASE
     Dosage: 50?G/500?G
     Route: 055
  7. TIKLID [Concomitant]
     Indication: MITRAL VALVE INCOMPETENCE
     Route: 048

REACTIONS (3)
  - Cholestasis [Recovered/Resolved]
  - Transaminases increased [Recovered/Resolved]
  - C-reactive protein increased [Unknown]
